FAERS Safety Report 10450494 (Version 1)
Quarter: 2014Q3

REPORT INFORMATION
  Report Type: Spontaneous
  Country: US (occurrence: None)
  Receive Date: 20140910
  Receipt Date: 20140910
  Transmission Date: 20150326
  Serious: No
  Sender: FDA-Public Use
  Company Number: 13097ADE

PATIENT
  Age: 69 Year
  Sex: Female

DRUGS (6)
  1. SYNTHROID [Concomitant]
     Active Substance: LEVOTHYROXINE SODIUM
  2. FUROSEMIDE (FUROSEMIDE) [Concomitant]
     Active Substance: FUROSEMIDE
  3. LACTULOSE (LACTULOSE) [Concomitant]
     Active Substance: LACTULOSE
  4. POTASSIUM CITRATE. [Suspect]
     Active Substance: POTASSIUM CITRATE
     Indication: HEPATIC CIRRHOSIS
     Dosage: 1 TAB PO BID, ORAL
     Route: 048
  5. SPIRONOLACTONE (SPIRONOLACTONE) [Concomitant]
     Active Substance: SPIRONOLACTONE
  6. MAGNESIUM (MAGNESIUM) [Concomitant]
     Active Substance: MAGNESIUM

REACTIONS (2)
  - Foreign body [None]
  - Throat irritation [None]

NARRATIVE: CASE EVENT DATE: 20130921
